FAERS Safety Report 8687507 (Version 5)
Quarter: 2012Q4

REPORT INFORMATION
  Report Type: Report from Study
  Country: JP (occurrence: JP)
  Receive Date: 20120727
  Receipt Date: 20121015
  Transmission Date: 20130627
  Serious: Yes (Hospitalization)
  Sender: FDA-Public Use
  Company Number: JP-009507513-1207JPN008762

PATIENT
  Age: 46 Year
  Sex: Female
  Weight: 57 kg

DRUGS (13)
  1. PEGINTRON [Suspect]
     Indication: HEPATITIS C
     Dosage: 1.5 Microgram per kilogram, qw
     Route: 058
     Dates: start: 20120514, end: 20120702
  2. REBETOL [Suspect]
     Indication: HEPATITIS C
     Dosage: 800 mg, qd
     Route: 048
     Dates: start: 20120514
  3. REBETOL [Suspect]
     Dosage: 600 mg, qd
     Route: 048
  4. REBETOL [Suspect]
     Dosage: 400 mg, qd
     Route: 048
     Dates: end: 20120702
  5. TELAVIC [Suspect]
     Indication: HEPATITIS C
     Dosage: 2250 mg, qd
     Route: 048
     Dates: start: 20120514, end: 20120702
  6. TAKEPRON [Concomitant]
     Indication: HEPATITIS C
     Dosage: 1 dosage form, qd
     Route: 048
     Dates: start: 20120514
  7. LANSOPRAZOLE [Concomitant]
     Dosage: 15 mg, qd; cumulative dose-120 mg
     Route: 048
     Dates: start: 20120514, end: 20120709
  8. ALLEGRA [Concomitant]
     Indication: HEPATITIS C
     Dosage: 60 mg, qd
     Route: 048
     Dates: start: 20120518
  9. ALLEGRA [Concomitant]
     Dosage: 120 mg, qd
     Route: 048
     Dates: start: 20120521, end: 20120709
  10. ZYLORIC [Concomitant]
     Indication: HEPATITIS C
     Dosage: 1 Dosage form
     Route: 048
     Dates: start: 20120611
  11. MYSER (DIFLUPREDNATE) [Concomitant]
     Dosage: 5g/book/day
     Route: 061
     Dates: start: 20120525
  12. ALLOPURINOL [Concomitant]
     Indication: HEPATITIS C
     Dosage: 100 mg, qd
     Route: 048
     Dates: start: 20120514, end: 20120709
  13. ALLOPURINOL [Concomitant]
     Dosage: 100 mg, qd
     Route: 048
     Dates: start: 20120611, end: 20120709

REACTIONS (2)
  - Pancreatitis acute [Recovering/Resolving]
  - Eczema [None]
